FAERS Safety Report 7772210-7 (Version None)
Quarter: 2011Q3

REPORT INFORMATION
  Report Type: 
  Country: None (occurrence: None)
  Receive Date: 20110922
  Receipt Date: 20100517
  Transmission Date: 20111222
  Serious: No
  Sender: FDA-Public Use
  Company Number: US-ASTRAZENECA-2009SE15351

PATIENT
  Sex: Female

DRUGS (5)
  1. ATENOLOL [Concomitant]
     Dates: start: 20060714
  2. SEROQUEL [Suspect]
     Route: 048
     Dates: start: 20060905
  3. IMITREX [Concomitant]
     Dates: start: 20060418
  4. LEVOTHYROXINE SODIUM [Concomitant]
     Dates: start: 20061010
  5. CYCLOBENZAPR [Concomitant]
     Dates: start: 20060330

REACTIONS (1)
  - DIABETES MELLITUS [None]
